FAERS Safety Report 12859434 (Version 3)
Quarter: 2017Q1

REPORT INFORMATION
  Report Type: Spontaneous
  Country: US (occurrence: US)
  Receive Date: 20161018
  Receipt Date: 20170117
  Transmission Date: 20170428
  Serious: No
  Sender: FDA-Public Use
  Company Number: US-ASTRAZENECA-2016SF06885

PATIENT
  Age: 58 Year
  Sex: Male
  Weight: 72.6 kg

DRUGS (4)
  1. TUDORZA PRESSAIR [Suspect]
     Active Substance: ACLIDINIUM BROMIDE
     Indication: DYSPNOEA
     Route: 055
     Dates: start: 2015
  2. REMICADE [Concomitant]
     Active Substance: INFLIXIMAB
     Indication: RHEUMATOID ARTHRITIS
  3. ENBREL [Concomitant]
     Active Substance: ETANERCEPT
     Indication: RHEUMATOID ARTHRITIS
  4. OXYCODONE [Concomitant]
     Active Substance: OXYCODONE
     Indication: PAIN
     Dosage: 10 MG, ONE EVERY 2-4 HOURS
     Route: 048
     Dates: start: 2014

REACTIONS (6)
  - Somnolence [Unknown]
  - Circumstance or information capable of leading to medication error [Unknown]
  - Intentional device misuse [Recovered/Resolved]
  - Dyspnoea [Not Recovered/Not Resolved]
  - Thyroid disorder [Unknown]
  - Oxygen saturation abnormal [Recovered/Resolved]

NARRATIVE: CASE EVENT DATE: 2015
